FAERS Safety Report 4743027-2 (Version None)
Quarter: 2005Q3

REPORT INFORMATION
  Report Type: 
  Country: None (occurrence: None)
  Receive Date: 20050809
  Receipt Date: 20050802
  Transmission Date: 20060218
  Serious: Yes (Death, Life-Threatening, Hospitalization, Other)
  Sender: FDA-Public Use
  Company Number: USA-2005-0020920

PATIENT
  Age: 16 Month
  Sex: Male

DRUGS (1)
  1. OXYCONTIN [Suspect]
     Dosage: 80 MG, SEE TEXT, ORAL
     Route: 048

REACTIONS (16)
  - ACCIDENTAL DRUG INTAKE BY CHILD [None]
  - BRAIN DEATH [None]
  - BRAIN OEDEMA [None]
  - CHILD MALTREATMENT SYNDROME [None]
  - COMA [None]
  - CONVULSION [None]
  - DYSPNOEA [None]
  - ELECTROLYTE IMBALANCE [None]
  - MIOSIS [None]
  - OVERDOSE [None]
  - OXYGEN SATURATION DECREASED [None]
  - PUPIL FIXED [None]
  - RESPIRATORY ARREST [None]
  - RESPIRATORY DEPRESSION [None]
  - RETINAL HAEMORRHAGE [None]
  - VOMITING [None]
